FAERS Safety Report 25017730 (Version 6)
Quarter: 2025Q2

REPORT INFORMATION
  Report Type: Spontaneous
  Country: JP (occurrence: JP)
  Receive Date: 20250227
  Receipt Date: 20250415
  Transmission Date: 20250716
  Serious: Yes (Death, Other)
  Sender: OTSUKA
  Company Number: JP-MMM-Otsuka-Q4Y1SAIL

PATIENT
  Age: 88 Year
  Sex: Male

DRUGS (8)
  1. REXULTI [Suspect]
     Active Substance: BREXPIPRAZOLE
     Indication: Dementia with Lewy bodies
     Route: 048
     Dates: start: 20240914, end: 20250114
  2. REXULTI [Suspect]
     Active Substance: BREXPIPRAZOLE
     Indication: Hallucination, visual
     Route: 048
     Dates: start: 20221008, end: 20221114
  3. REXULTI [Suspect]
     Active Substance: BREXPIPRAZOLE
     Indication: Abnormal behaviour
     Route: 048
     Dates: start: 20221115, end: 20240105
  4. REXULTI [Suspect]
     Active Substance: BREXPIPRAZOLE
     Route: 048
     Dates: start: 20240106, end: 20240903
  5. MEMANTINE HYDROCHLORIDE [Suspect]
     Active Substance: MEMANTINE HYDROCHLORIDE
     Indication: Dementia with Lewy bodies
     Route: 048
     Dates: start: 20230826, end: 20250114
  6. MEMANTINE HYDROCHLORIDE [Suspect]
     Active Substance: MEMANTINE HYDROCHLORIDE
     Indication: Hallucination, visual
     Route: 048
     Dates: start: 20230701, end: 20230825
  7. MEMANTINE HYDROCHLORIDE [Suspect]
     Active Substance: MEMANTINE HYDROCHLORIDE
     Indication: Abnormal behaviour
  8. DAYVIGO [Suspect]
     Active Substance: LEMBOREXANT
     Indication: Product used for unknown indication
     Route: 048
     Dates: start: 20231021, end: 20240105

REACTIONS (3)
  - Death [Fatal]
  - Somnolence [Recovered/Resolved]
  - Product use in unapproved indication [Unknown]

NARRATIVE: CASE EVENT DATE: 20221008
